FAERS Safety Report 18047687 (Version 1)
Quarter: 2020Q3

REPORT INFORMATION
  Report Type: Spontaneous
  Country: FR (occurrence: FR)
  Receive Date: 20200721
  Receipt Date: 20200721
  Transmission Date: 20201103
  Serious: Yes (Hospitalization)
  Sender: FDA-Public Use
  Company Number: FR-SUN PHARMACEUTICAL INDUSTRIES LTD-2020RR-254119

PATIENT
  Age: 37 Year
  Sex: Male
  Weight: 90 kg

DRUGS (14)
  1. PARACETAMOL [Suspect]
     Active Substance: ACETAMINOPHEN
     Indication: PAIN
     Dosage: 3 GRAM, DAILY
     Route: 048
     Dates: start: 20200307, end: 20200328
  2. EBASTINE [Suspect]
     Active Substance: EBASTINE
     Indication: HYPERSENSITIVITY
     Dosage: 20 MILLIGRAM, DAILY
     Route: 048
     Dates: start: 20200504, end: 20200518
  3. ESOMEPRAZOLE. [Suspect]
     Active Substance: ESOMEPRAZOLE MAGNESIUM
     Indication: PRODUCT USED FOR UNKNOWN INDICATION
     Dosage: 20 MILLIGRAM, DAILY
     Route: 048
     Dates: start: 20200602, end: 20200621
  4. DERINOX, SOLUTION POUR PULVERISATION NASALE [Suspect]
     Active Substance: NAPHAZOLINE NITRATE\PREDNISOLONE
     Indication: PRODUCT USED FOR UNKNOWN INDICATION
     Dosage: 4 DOSAGE FORM, DAILY
     Route: 045
     Dates: start: 20200316, end: 20200321
  5. SYMBICORT [Suspect]
     Active Substance: BUDESONIDE\FORMOTEROL FUMARATE DIHYDRATE
     Indication: PRODUCT USED FOR UNKNOWN INDICATION
     Dosage: 4 DOSAGE FORM, DAILY
     Route: 055
     Dates: start: 20200311
  6. ACIDE CLAVULANIQUE [Suspect]
     Active Substance: CLAVULANIC ACID
     Indication: PRODUCT USED FOR UNKNOWN INDICATION
     Dosage: 375 MILLIGRAM, DAILY
     Route: 048
     Dates: start: 20200311, end: 20200325
  7. LEVOFLOXACIN. [Suspect]
     Active Substance: LEVOFLOXACIN
     Indication: PRODUCT USED FOR UNKNOWN INDICATION
     Dosage: 500 MILLIGRAM, DAILY
     Route: 048
     Dates: start: 20200311, end: 20200325
  8. TAMIFLU [Suspect]
     Active Substance: OSELTAMIVIR PHOSPHATE
     Indication: INFLUENZA
     Dosage: 150 MILLIGRAM, DAILY
     Route: 048
     Dates: start: 20200307, end: 20200312
  9. AZITHROMYCIN ANHYDROUS. [Suspect]
     Active Substance: AZITHROMYCIN ANHYDROUS
     Indication: PRODUCT USED FOR UNKNOWN INDICATION
     Dosage: 250 MILLIGRAM, DAILY
     Route: 048
     Dates: start: 20200316, end: 20200326
  10. SERETIDE [Suspect]
     Active Substance: FLUTICASONE PROPIONATE\SALMETEROL XINAFOATE
     Indication: PRODUCT USED FOR UNKNOWN INDICATION
     Dosage: 1000 MICROGRAM, DAILY
     Route: 055
     Dates: start: 20200515
  11. SERESTA 10 MG, COMPRIME [Suspect]
     Active Substance: OXAZEPAM
     Indication: ANXIETY
     Dosage: 20 MILLIGRAM, DAILY
     Route: 048
     Dates: end: 20200621
  12. AMOXICILLIN. [Suspect]
     Active Substance: AMOXICILLIN
     Indication: PRODUCT USED FOR UNKNOWN INDICATION
     Dosage: 3 GRAM, DAILY
     Route: 048
     Dates: start: 20200311, end: 20200325
  13. ACIDE FUSIDIQUE [Suspect]
     Active Substance: FUSIDIC ACID
     Indication: PRODUCT USED FOR UNKNOWN INDICATION
     Dosage: 2 DOSAGE FORM, DAILY
     Route: 003
     Dates: start: 20200602, end: 20200621
  14. MUPIROCINE [Suspect]
     Active Substance: MUPIROCIN
     Indication: PRODUCT USED FOR UNKNOWN INDICATION
     Dosage: ()
     Route: 045
     Dates: start: 20200519, end: 20200526

REACTIONS (1)
  - Pancreatitis acute [Recovering/Resolving]

NARRATIVE: CASE EVENT DATE: 20200620
